FAERS Safety Report 16905931 (Version 1)
Quarter: 2019Q4

REPORT INFORMATION
  Report Type: Spontaneous
  Country: US (occurrence: US)
  Receive Date: 20190819
  Receipt Date: 20190819
  Transmission Date: 20200122
  Serious: No
  Sender: FDA-Public Use
  Company Number: None

PATIENT
  Age: 54 Year

DRUGS (9)
  1. AMLODIPINE [Concomitant]
     Active Substance: AMLODIPINE BESYLATE
  2. METOPROLOL SUCC [Concomitant]
     Active Substance: METOPROLOL SUCCINATE
  3. ISOSORBIDE. [Concomitant]
     Active Substance: ISOSORBIDE
  4. IBUPROFEN. [Concomitant]
     Active Substance: IBUPROFEN
  5. ASPIRIN. [Concomitant]
     Active Substance: ASPIRIN
  6. TASIGNA [Suspect]
     Active Substance: NILOTINIB
     Indication: CHRONIC MYELOID LEUKAEMIA
     Route: 048
     Dates: start: 201508
  7. RENVELA [Concomitant]
     Active Substance: SEVELAMER CARBONATE
  8. FOSRENOL [Concomitant]
     Active Substance: LANTHANUM CARBONATE
  9. SENSIPAR [Concomitant]
     Active Substance: CINACALCET HYDROCHLORIDE

REACTIONS (1)
  - Renal transplant [None]

NARRATIVE: CASE EVENT DATE: 20190816
